FAERS Safety Report 10707611 (Version 3)
Quarter: 2015Q1

REPORT INFORMATION
  Report Type: Report from Study
  Country: FR (occurrence: FR)
  Receive Date: 20150113
  Receipt Date: 20150115
  Transmission Date: 20150721
  Serious: Yes (Other)
  Sender: FDA-Public Use
  Company Number: PHHY2014FR168490

PATIENT
  Age: 34 Year
  Sex: Female

DRUGS (1)
  1. LDK378 [Suspect]
     Active Substance: CERITINIB
     Indication: NON-SMALL CELL LUNG CANCER METASTATIC
     Dosage: 5 DF, QD (750 MG)
     Route: 065
     Dates: start: 20141117

REACTIONS (1)
  - Abdominal rigidity [Recovering/Resolving]

NARRATIVE: CASE EVENT DATE: 20141223
